FAERS Safety Report 17714506 (Version 1)
Quarter: 2020Q2

REPORT INFORMATION
  Report Type: Spontaneous
  Country: SE (occurrence: SE)
  Receive Date: 20200427
  Receipt Date: 20200427
  Transmission Date: 20200714
  Serious: Yes (Other)
  Sender: FDA-Public Use
  Company Number: NVSC2020SE110686

PATIENT
  Age: 37 Year
  Sex: Male

DRUGS (1)
  1. SOMATROPIN. [Suspect]
     Active Substance: SOMATROPIN
     Indication: BODY HEIGHT BELOW NORMAL
     Dosage: 12 MG
     Route: 065
     Dates: start: 1996, end: 2006

REACTIONS (5)
  - Weight decreased [Unknown]
  - Arthralgia [Unknown]
  - Pituitary tumour [Unknown]
  - Hormone level abnormal [Unknown]
  - Weight increased [Unknown]
